FAERS Safety Report 9550136 (Version 1)
Quarter: 2013Q3

REPORT INFORMATION
  Report Type: Spontaneous
  Country: ZA (occurrence: ZA)
  Receive Date: 20130924
  Receipt Date: 20130924
  Transmission Date: 20140515
  Serious: Yes (Death, Other)
  Sender: FDA-Public Use
  Company Number: ZA-MERCK-1309ZAF009439

PATIENT
  Sex: 0

DRUGS (1)
  1. CANCIDAS 50MG [Suspect]
     Dosage: UNK

REACTIONS (2)
  - Death [Fatal]
  - Renal transplant [Unknown]
